FAERS Safety Report 4593986-6 (Version None)
Quarter: 2005Q1

REPORT INFORMATION
  Report Type: 
  Country: None (occurrence: None)
  Receive Date: 20050218
  Receipt Date: 20041201
  Transmission Date: 20050727
  Serious: Yes (Hospitalization)
  Sender: FDA-Public Use
  Company Number: S04-SWI-08092-01

PATIENT
  Age: 56 Year
  Sex: Female

DRUGS (16)
  1. SEROPRAM (CITALOPRAM) [Suspect]
     Indication: DEPRESSION
     Dosage: 20 MG QD PO
     Route: 048
     Dates: start: 19990101
  2. SANDIMMUNE [Suspect]
     Indication: ASTHMA
     Dosage: 75 MG BID PO
     Route: 048
     Dates: end: 20041029
  3. TOLVON (MIANSERIN HYDROCHLORIDE) [Suspect]
     Indication: DEPRESSION
     Dosage: 30 MG QD PO
     Route: 048
     Dates: start: 20041010
  4. ZESTRIL [Suspect]
     Dosage: 20 MG QD PO
     Route: 048
     Dates: end: 20041029
  5. SERETIDE DISKUS [Suspect]
     Indication: ASTHMA
     Dosage: 500
  6. UNIFYL (THEOPHYLLINE) [Suspect]
     Dosage: 600 MG QD PO
     Route: 048
  7. SINGULAIR [Concomitant]
  8. PLAVIX [Concomitant]
  9. PRAVASTATIN [Concomitant]
  10. PANTOZOL (PANTROPRAZOLE SODIUM) [Concomitant]
  11. PREDNISONE [Concomitant]
  12. FOSAMAX [Concomitant]
  13. CALCIMAGON-D3 [Concomitant]
  14. SPIRIVA ^BOEHRINGER INGELHEIM^(TIOTROPIUM BROMIDE) [Concomitant]
  15. NORVASC [Concomitant]
  16. ADALAT [Concomitant]

REACTIONS (14)
  - ASTHMA [None]
  - CEREBROVASCULAR ACCIDENT [None]
  - DIPLOPIA [None]
  - DYSARTHRIA [None]
  - ELECTROCARDIOGRAM QT PROLONGED [None]
  - EYELID PTOSIS [None]
  - FACIAL PARESIS [None]
  - HEMIANOPIA [None]
  - HYPERCHOLESTEROLAEMIA [None]
  - HYPERTENSION [None]
  - HYPOAESTHESIA [None]
  - OVERDOSE [None]
  - RENAL IMPAIRMENT [None]
  - SEROTONIN SYNDROME [None]
